FAERS Safety Report 8840938 (Version 2)
Quarter: 2012Q4

REPORT INFORMATION
  Report Type: 
  Country: JP (occurrence: JP)
  Receive Date: 20121015
  Receipt Date: 20121023
  Transmission Date: 20130627
  Serious: Yes (Other)
  Sender: FDA-Public Use
  Company Number: PHHY2012JP090737

PATIENT
  Age: 63 Year
  Sex: Male

DRUGS (4)
  1. AMANTADINE [Suspect]
     Route: 048
     Dates: start: 201205
  2. AMANTADINE [Suspect]
     Dosage: Half the original dosage
  3. NICERGOLINE [Concomitant]
     Route: 048
     Dates: start: 201205
  4. L-DOPA [Concomitant]

REACTIONS (1)
  - Disturbance in attention [Unknown]
